FAERS Safety Report 5254280-3 (Version None)
Quarter: 2007Q1

REPORT INFORMATION
  Report Type: 
  Country: None (occurrence: None)
  Receive Date: 20070302
  Receipt Date: 20070219
  Transmission Date: 20070707
  Serious: Yes (Death, Life-Threatening, Hospitalization)
  Sender: FDA-Public Use
  Company Number: FR-GLAXOSMITHKLINE-B0459640A

PATIENT
  Age: 61 Year
  Sex: Male

DRUGS (3)
  1. ALKERAN [Suspect]
     Indication: MULTIPLE MYELOMA
     Route: 065
     Dates: start: 20050816
  2. DEXAMETHASONE [Concomitant]
     Indication: MULTIPLE MYELOMA
     Route: 065
     Dates: start: 20050816
  3. HEMODIALYSIS [Concomitant]

REACTIONS (16)
  - ACIDOSIS [None]
  - BONE MARROW FAILURE [None]
  - BRONCHIAL OBSTRUCTION [None]
  - CARDIAC FAILURE [None]
  - CONFUSIONAL STATE [None]
  - DYSPNOEA [None]
  - HYPERCAPNIA [None]
  - HYPOXIA [None]
  - INFLAMMATION [None]
  - LUNG DISORDER [None]
  - PRODUCTIVE COUGH [None]
  - RESPIRATORY DISTRESS [None]
  - RHONCHI [None]
  - SOMNOLENCE [None]
  - SPUTUM PURULENT [None]
  - TACHYPNOEA [None]
